FAERS Safety Report 7416969-7 (Version None)
Quarter: 2011Q2

REPORT INFORMATION
  Report Type: 
  Country: None (occurrence: None)
  Receive Date: 20110415
  Receipt Date: 20110408
  Transmission Date: 20111010
  Serious: Yes (Other)
  Sender: FDA-Public Use
  Company Number: RU-GENZYME-CAMP-1001101

PATIENT
  Age: 56 Year

DRUGS (1)
  1. CAMPATH [Suspect]
     Indication: CHRONIC LYMPHOCYTIC LEUKAEMIA
     Dosage: 27 INJECTIONS
     Route: 065

REACTIONS (3)
  - FEBRILE NEUTROPENIA [None]
  - ALANINE AMINOTRANSFERASE [None]
  - BLOOD ALKALINE PHOSPHATASE INCREASED [None]
